FAERS Safety Report 10934945 (Version 1)
Quarter: 2015Q1

REPORT INFORMATION
  Report Type: Spontaneous
  Country: US (occurrence: US)
  Receive Date: 20150320
  Receipt Date: 20150320
  Transmission Date: 20150721
  Serious: Yes (Hospitalization)
  Sender: FDA-Public Use
  Company Number: US-ABBVIE-15P-163-1362176-00

PATIENT
  Sex: Male

DRUGS (1)
  1. ANDROGEL [Suspect]
     Active Substance: TESTOSTERONE
     Indication: BLOOD TESTOSTERONE DECREASED
     Route: 062
     Dates: start: 20080324, end: 201001

REACTIONS (11)
  - Cerebrovascular accident [Unknown]
  - Emotional distress [Unknown]
  - Anxiety [Unknown]
  - Tension [Unknown]
  - Economic problem [Unknown]
  - Cerebrovascular accident [Unknown]
  - Multiple injuries [Unknown]
  - Cerebral infarction [Unknown]
  - Carotid artery occlusion [Unknown]
  - Injury [Unknown]
  - Pain [Unknown]

NARRATIVE: CASE EVENT DATE: 20100122
